FAERS Safety Report 16965068 (Version 1)
Quarter: 2019Q4

REPORT INFORMATION
  Report Type: Spontaneous
  Country: ES (occurrence: ES)
  Receive Date: 20191028
  Receipt Date: 20191028
  Transmission Date: 20200122
  Serious: Yes (Other)
  Sender: FDA-Public Use
  Company Number: ES-SCIEGEN PHARMACEUTICALS INC-2019SCILIT00290

PATIENT

DRUGS (2)
  1. PREDNISONE. [Interacting]
     Active Substance: PREDNISONE
  2. METFORMIN HYDROCHLORIDETABLETS [Suspect]
     Active Substance: METFORMIN HYDROCHLORIDE

REACTIONS (2)
  - Dermatitis exfoliative generalised [Recovering/Resolving]
  - Lichenification [Recovering/Resolving]
